FAERS Safety Report 26063747 (Version 2)
Quarter: 2025Q4

REPORT INFORMATION
  Report Type: Spontaneous
  Country: US (occurrence: US)
  Receive Date: 20251119
  Receipt Date: 20251231
  Transmission Date: 20260117
  Serious: No
  Sender: TOLMAR
  Company Number: US-Tolmar-TLM-2025-08614

PATIENT

DRUGS (4)
  1. ELIGARD [Suspect]
     Active Substance: LEUPROLIDE ACETATE
     Indication: Prostate cancer
     Dosage: SYRINGE A: LOT: 15513AUS, EXP: 04-2027?SYRINGE B: LOT: 15513BUS, EXP: 03-2027?DOSE NOT ADMINISTERED
  2. ELIGARD [Suspect]
     Active Substance: LEUPROLIDE ACETATE
     Indication: Metastases to bone
     Dosage: REPLACEMENT DOSE GIVEN
  3. DEVICE [Suspect]
     Active Substance: DEVICE
     Indication: Prostate cancer
     Dosage: SYRINGE A: LOT: 15513AUS, EXP: 04-2027?SYRINGE B: LOT: 15513BUS, EXP: 03-2027
  4. DEVICE [Suspect]
     Active Substance: DEVICE
     Indication: Metastases to bone

REACTIONS (5)
  - Intercepted product preparation error [Unknown]
  - Wrong technique in product usage process [Unknown]
  - Device leakage [Unknown]
  - Device breakage [Unknown]
  - Product quality issue [Unknown]
